FAERS Safety Report 13196052 (Version 1)
Quarter: 2017Q1

REPORT INFORMATION
  Report Type: Spontaneous
  Country: FI (occurrence: FI)
  Receive Date: 20170208
  Receipt Date: 20170208
  Transmission Date: 20170428
  Serious: Yes (Other)
  Sender: FDA-Public Use
  Company Number: FI-ROCHE-1886824

PATIENT
  Age: 35 Year
  Sex: Female

DRUGS (27)
  1. DOCETAXEL. [Concomitant]
     Active Substance: DOCETAXEL
     Indication: LYMPHADENOPATHY MEDIASTINAL
  2. VINORELBINE [Concomitant]
     Active Substance: VINORELBINE\VINORELBINE TARTRATE
     Indication: LYMPHADENOPATHY MEDIASTINAL
  3. DOCETAXEL. [Concomitant]
     Active Substance: DOCETAXEL
     Indication: METASTASES TO LUNG
  4. LAPATINIB [Concomitant]
     Active Substance: LAPATINIB
     Indication: METASTASES TO LUNG
  5. CARBOPLATIN. [Concomitant]
     Active Substance: CARBOPLATIN
     Indication: METASTASES TO LUNG
  6. CAPECITABINE. [Suspect]
     Active Substance: CAPECITABINE
     Indication: INVASIVE DUCTAL BREAST CARCINOMA
     Route: 065
     Dates: start: 201205, end: 201208
  7. PROCREN [Concomitant]
     Active Substance: LEUPROLIDE ACETATE
     Indication: METASTASES TO LUNG
     Route: 065
     Dates: start: 201301
  8. CISPLATIN. [Concomitant]
     Active Substance: CISPLATIN
     Indication: INVASIVE DUCTAL BREAST CARCINOMA
     Route: 065
     Dates: start: 201203
  9. PACLITAXEL. [Concomitant]
     Active Substance: PACLITAXEL
     Indication: LYMPHADENOPATHY MEDIASTINAL
  10. VINORELBINE [Concomitant]
     Active Substance: VINORELBINE\VINORELBINE TARTRATE
     Indication: METASTASES TO LUNG
  11. PROCREN [Concomitant]
     Active Substance: LEUPROLIDE ACETATE
     Indication: LYMPHADENOPATHY MEDIASTINAL
  12. DOCETAXEL. [Concomitant]
     Active Substance: DOCETAXEL
     Indication: INVASIVE DUCTAL BREAST CARCINOMA
     Route: 065
     Dates: start: 2012
  13. HERCEPTIN [Suspect]
     Active Substance: TRASTUZUMAB
     Indication: INVASIVE DUCTAL BREAST CARCINOMA
     Route: 065
     Dates: start: 2012
  14. HERCEPTIN [Suspect]
     Active Substance: TRASTUZUMAB
     Indication: METASTASES TO LUNG
     Route: 065
     Dates: start: 201403
  15. CAPECITABINE. [Suspect]
     Active Substance: CAPECITABINE
     Indication: METASTASES TO LUNG
  16. CAPECITABINE. [Suspect]
     Active Substance: CAPECITABINE
     Indication: METASTASES TO LUNG
  17. CISPLATIN. [Concomitant]
     Active Substance: CISPLATIN
     Indication: METASTASES TO LUNG
  18. CISPLATIN. [Concomitant]
     Active Substance: CISPLATIN
     Indication: LYMPHADENOPATHY MEDIASTINAL
  19. CARBOPLATIN. [Concomitant]
     Active Substance: CARBOPLATIN
     Indication: LYMPHADENOPATHY MEDIASTINAL
  20. LAPATINIB [Concomitant]
     Active Substance: LAPATINIB
     Indication: LYMPHADENOPATHY MEDIASTINAL
  21. PACLITAXEL. [Concomitant]
     Active Substance: PACLITAXEL
     Indication: INVASIVE DUCTAL BREAST CARCINOMA
     Route: 065
     Dates: start: 201403
  22. HERCEPTIN [Suspect]
     Active Substance: TRASTUZUMAB
     Indication: LYMPHADENOPATHY MEDIASTINAL
  23. PROCREN [Concomitant]
     Active Substance: LEUPROLIDE ACETATE
     Indication: INVASIVE DUCTAL BREAST CARCINOMA
     Route: 065
     Dates: start: 2012, end: 2012
  24. LAPATINIB [Concomitant]
     Active Substance: LAPATINIB
     Indication: INVASIVE DUCTAL BREAST CARCINOMA
     Route: 065
     Dates: start: 201205
  25. VINORELBINE [Concomitant]
     Active Substance: VINORELBINE\VINORELBINE TARTRATE
     Indication: INVASIVE DUCTAL BREAST CARCINOMA
     Route: 065
     Dates: start: 201208
  26. PACLITAXEL. [Concomitant]
     Active Substance: PACLITAXEL
     Indication: METASTASES TO LUNG
  27. CARBOPLATIN. [Concomitant]
     Active Substance: CARBOPLATIN
     Indication: INVASIVE DUCTAL BREAST CARCINOMA
     Route: 065
     Dates: start: 201403

REACTIONS (2)
  - Seizure [Recovered/Resolved]
  - Loss of consciousness [Recovered/Resolved]

NARRATIVE: CASE EVENT DATE: 2012
